FAERS Safety Report 16205306 (Version 2)
Quarter: 2019Q2

REPORT INFORMATION
  Report Type: Spontaneous
  Country: US (occurrence: US)
  Receive Date: 20190417
  Receipt Date: 20190426
  Transmission Date: 20190711
  Serious: No
  Sender: FDA-Public Use
  Company Number: US-JNJFOC-20190321836

PATIENT
  Age: 22 Year
  Sex: Male
  Weight: 56.7 kg

DRUGS (1)
  1. CHILDRENS SUDAFED NASAL DECONGESTANT [Suspect]
     Active Substance: PSEUDOEPHEDRINE HYDROCHLORIDE
     Indication: SINUS CONGESTION
     Route: 050

REACTIONS (3)
  - Wrong technique in product usage process [Unknown]
  - Product administered to patient of inappropriate age [Unknown]
  - Incorrect route of product administration [Unknown]
